FAERS Safety Report 4397087-1 (Version None)
Quarter: 2004Q2

REPORT INFORMATION
  Report Type: 
  Country: None (occurrence: None)
  Receive Date: 20040621
  Receipt Date: 20040327
  Transmission Date: 20050107
  Serious: Yes (Other)
  Sender: FDA-Public Use
  Company Number: USA-2004-0014166

PATIENT
  Age: 40 Year
  Sex: Female

DRUGS (2)
  1. OXYCONTIN [Suspect]
     Indication: PAIN
     Dosage: 40 MG, Q8H
     Dates: start: 20030301
  2. PERCOCET [Suspect]
     Dates: start: 20031001

REACTIONS (3)
  - DRUG WITHDRAWAL SYNDROME [None]
  - POLYSUBSTANCE ABUSE [None]
  - TREMOR [None]
